FAERS Safety Report 20108870 (Version 7)
Quarter: 2022Q3

REPORT INFORMATION
  Report Type: Report from Study
  Country: FR (occurrence: FR)
  Receive Date: 20211124
  Receipt Date: 20220909
  Transmission Date: 20221026
  Serious: Yes (Hospitalization, Other)
  Sender: FDA-Public Use
  Company Number: FR-TAKEDA-2021TUS071550

PATIENT
  Age: 6 Year
  Sex: Male

DRUGS (35)
  1. TEDUGLUTIDE [Suspect]
     Active Substance: TEDUGLUTIDE
     Indication: Short-bowel syndrome
     Dosage: 0.65 MILLIGRAM, QD
     Route: 042
     Dates: start: 20190521, end: 20200828
  2. TEDUGLUTIDE [Suspect]
     Active Substance: TEDUGLUTIDE
     Indication: Short-bowel syndrome
     Dosage: 0.65 MILLIGRAM, QD
     Route: 042
     Dates: start: 20190521, end: 20200828
  3. TEDUGLUTIDE [Suspect]
     Active Substance: TEDUGLUTIDE
     Indication: Short-bowel syndrome
     Dosage: 0.65 MILLIGRAM, QD
     Route: 042
     Dates: start: 20190521, end: 20200828
  4. TEDUGLUTIDE [Suspect]
     Active Substance: TEDUGLUTIDE
     Indication: Short-bowel syndrome
     Dosage: 0.65 MILLIGRAM, QD
     Route: 042
     Dates: start: 20190521, end: 20200828
  5. TEDUGLUTIDE [Suspect]
     Active Substance: TEDUGLUTIDE
     Dosage: 0.80 MILLIGRAM, QD
     Route: 042
     Dates: start: 20200828, end: 20211104
  6. TEDUGLUTIDE [Suspect]
     Active Substance: TEDUGLUTIDE
     Dosage: 0.80 MILLIGRAM, QD
     Route: 042
     Dates: start: 20200828, end: 20211104
  7. TEDUGLUTIDE [Suspect]
     Active Substance: TEDUGLUTIDE
     Dosage: 0.80 MILLIGRAM, QD
     Route: 042
     Dates: start: 20200828, end: 20211104
  8. TEDUGLUTIDE [Suspect]
     Active Substance: TEDUGLUTIDE
     Dosage: 0.80 MILLIGRAM, QD
     Route: 042
     Dates: start: 20200828, end: 20211104
  9. TEDUGLUTIDE [Suspect]
     Active Substance: TEDUGLUTIDE
     Dosage: 0.9 MILLIGRAM, QD
     Route: 042
     Dates: start: 20211105
  10. TEDUGLUTIDE [Suspect]
     Active Substance: TEDUGLUTIDE
     Dosage: 0.9 MILLIGRAM, QD
     Route: 042
     Dates: start: 20211105
  11. TEDUGLUTIDE [Suspect]
     Active Substance: TEDUGLUTIDE
     Dosage: 0.9 MILLIGRAM, QD
     Route: 042
     Dates: start: 20211105
  12. TEDUGLUTIDE [Suspect]
     Active Substance: TEDUGLUTIDE
     Dosage: 0.9 MILLIGRAM, QD
     Route: 042
     Dates: start: 20211105
  13. VITAMINS [Concomitant]
     Active Substance: VITAMINS
     Indication: Fatigue
     Dosage: 10 MILLILITER, QD
     Route: 048
     Dates: start: 20211104, end: 20220510
  14. VITAMINS [Concomitant]
     Active Substance: VITAMINS
     Indication: Hypovitaminosis
     Dosage: 10 MILLILITER, QD
     Route: 048
     Dates: start: 20220125, end: 20220510
  15. VENOFER [Concomitant]
     Active Substance: IRON SUCROSE
     Indication: Anaemia
     Dosage: 115 MILLIGRAM, QD
     Route: 030
     Dates: start: 20201126, end: 20201126
  16. VENOFER [Concomitant]
     Active Substance: IRON SUCROSE
     Dosage: 125 MILLIGRAM, QD
     Route: 042
     Dates: start: 20211118, end: 20211118
  17. VENOFER [Concomitant]
     Active Substance: IRON SUCROSE
     Dosage: 125 MILLIGRAM, QD
     Route: 042
     Dates: start: 20211125, end: 20211125
  18. VENOFER [Concomitant]
     Active Substance: IRON SUCROSE
     Dosage: 125 MILLIGRAM, QD
     Route: 042
     Dates: start: 20211202, end: 20211202
  19. VENOFER [Concomitant]
     Active Substance: IRON SUCROSE
     Dosage: 90 MILLIGRAM, QD
     Route: 042
     Dates: start: 20190215, end: 20190215
  20. VENOFER [Concomitant]
     Active Substance: IRON SUCROSE
     Dosage: UNK UNK, QD
     Route: 058
     Dates: start: 20191010, end: 20191010
  21. VENOFER [Concomitant]
     Active Substance: IRON SUCROSE
     Dosage: UNK UNK, QD
     Route: 058
     Dates: start: 20191017, end: 20191017
  22. VENOFER [Concomitant]
     Active Substance: IRON SUCROSE
     Dosage: UNK UNK, QD
     Route: 058
     Dates: start: 20191024, end: 20191024
  23. VENOFER [Concomitant]
     Active Substance: IRON SUCROSE
     Dosage: 140 UNK
     Route: 042
     Dates: start: 20220614, end: 20220614
  24. URSODIOL [Concomitant]
     Active Substance: URSODIOL
     Indication: Cholestasis
     Dosage: 3 MILLILITER, BID
     Route: 048
     Dates: start: 20150625, end: 20190919
  25. URSODIOL [Concomitant]
     Active Substance: URSODIOL
     Dosage: 3.6 MILLILITER, BID
     Route: 048
     Dates: start: 20190920, end: 20200611
  26. URSODIOL [Concomitant]
     Active Substance: URSODIOL
     Dosage: 4 MILLILITER, BID
     Route: 048
     Dates: start: 20200612
  27. ASCORBIC ACID\ERGOCALCIFEROL\RETINOL\TOCOPHEROL [Concomitant]
     Active Substance: ASCORBIC ACID\ERGOCALCIFEROL\RETINOL\TOCOPHEROL
     Indication: Product used for unknown indication
     Dosage: 3 DOSAGE FORM, QD
     Route: 048
     Dates: start: 20200327
  28. QUESTRAN [Concomitant]
     Active Substance: CHOLESTYRAMINE
     Indication: Ileectomy
     Dosage: 8 GRAM, BID
     Route: 048
     Dates: start: 20150522
  29. ALBUTEROL [Concomitant]
     Active Substance: ALBUTEROL
     Indication: Asthma
     Dosage: UNK UNK, BID
     Route: 055
     Dates: start: 20170110
  30. SERETIDE [Concomitant]
     Active Substance: FLUTICASONE PROPIONATE\SALMETEROL XINAFOATE
     Indication: Asthma
     Dosage: UNK UNK, BID
     Route: 065
  31. FLUTICASONE PROPIONATE [Concomitant]
     Active Substance: FLUTICASONE PROPIONATE
     Indication: Asthma
     Dosage: UNK UNK, BID
     Route: 055
     Dates: start: 20160810
  32. INNOHEP [Concomitant]
     Active Substance: TINZAPARIN SODIUM
     Indication: Embolism
     Dosage: 0.50 MILLILITER, QD
     Route: 058
     Dates: start: 20181106
  33. SODIUM FEREDETATE [Concomitant]
     Active Substance: SODIUM FEREDETATE
     Indication: Mineral supplementation
     Dosage: 10 MILLILITER, BID
     Route: 048
     Dates: start: 20181003
  34. EMLA [Concomitant]
     Active Substance: LIDOCAINE\PRILOCAINE
     Indication: Local anaesthesia
     Dosage: UNK
     Route: 061
     Dates: start: 20181106
  35. SODIUM BICARBONATE [Concomitant]
     Active Substance: SODIUM BICARBONATE
     Indication: Diarrhoea
     Dosage: 500 MILLIGRAM, TID
     Route: 048
     Dates: start: 20160921

REACTIONS (4)
  - Gastrointestinal anastomotic stenosis [Recovered/Resolved]
  - Anastomotic ulcer [Recovered/Resolved]
  - Haematochezia [Unknown]
  - Hypophosphataemia [Recovered/Resolved]

NARRATIVE: CASE EVENT DATE: 20211104
